FAERS Safety Report 24896800 (Version 1)
Quarter: 2025Q1

REPORT INFORMATION
  Report Type: Spontaneous
  Country: AU (occurrence: AU)
  Receive Date: 20250128
  Receipt Date: 20250128
  Transmission Date: 20250409
  Serious: No
  Sender: ASTELLAS
  Company Number: AU-ASTELLAS-2024-AER-011587

PATIENT
  Age: 51 Year
  Sex: Female

DRUGS (2)
  1. VEOZAH [Suspect]
     Active Substance: FEZOLINETANT
     Indication: Menopausal symptoms
     Route: 065
     Dates: start: 20240717, end: 20241003
  2. ROSUVASTATIN [Concomitant]
     Active Substance: ROSUVASTATIN
     Indication: Hyperlipidaemia
     Route: 065
     Dates: end: 202410

REACTIONS (2)
  - Liver function test abnormal [Recovering/Resolving]
  - Helicobacter infection [Unknown]

NARRATIVE: CASE EVENT DATE: 20241003
